FAERS Safety Report 21999209 (Version 4)
Quarter: 2023Q4

REPORT INFORMATION
  Report Type: Spontaneous
  Country: US (occurrence: US)
  Receive Date: 20230216
  Receipt Date: 20231004
  Transmission Date: 20240109
  Serious: No
  Sender: FDA-Public Use
  Company Number: US-SA-SAC20230213001559

PATIENT
  Age: 64 Year
  Sex: Female

DRUGS (4)
  1. DUPIXENT [Suspect]
     Active Substance: DUPILUMAB
     Indication: Dermatitis atopic
     Dosage: 600 MG, 1X
     Route: 058
     Dates: start: 20230115, end: 20230115
  2. DUPIXENT [Suspect]
     Active Substance: DUPILUMAB
     Indication: Seborrhoeic dermatitis
     Dosage: 300 MG, QOW
     Route: 058
     Dates: start: 202301
  3. DUPIXENT [Suspect]
     Active Substance: DUPILUMAB
     Indication: Sebaceous gland disorder
  4. DUPIXENT [Suspect]
     Active Substance: DUPILUMAB
     Indication: Dry skin

REACTIONS (7)
  - Injection site pain [Unknown]
  - Injection site bruising [Unknown]
  - Rash [Recovering/Resolving]
  - Chronic obstructive pulmonary disease [Unknown]
  - Cough [Unknown]
  - Stress [Recovering/Resolving]
  - Product use in unapproved indication [Unknown]

NARRATIVE: CASE EVENT DATE: 20230101
